FAERS Safety Report 23875641 (Version 1)
Quarter: 2024Q2

REPORT INFORMATION
  Report Type: Spontaneous
  Country: DE (occurrence: DE)
  Receive Date: 20240520
  Receipt Date: 20240520
  Transmission Date: 20240716
  Serious: Yes (Other)
  Sender: FDA-Public Use
  Company Number: DE-002147023-NVSC2024DE101661

PATIENT

DRUGS (3)
  1. RUXOLITINIB [Suspect]
     Active Substance: RUXOLITINIB
     Indication: Polycythaemia vera
     Dosage: 10 MG, BID, (1 - 0 - 1), (10 MG IN THE MORNING AND IN THE EVENING RESPECTIVELY)
     Route: 065
     Dates: start: 202404
  2. RUXOLITINIB [Suspect]
     Active Substance: RUXOLITINIB
     Dosage: 10 MG, BID, (1 - 0 - 1)
     Route: 065
  3. MARCUMAR [Concomitant]
     Active Substance: PHENPROCOUMON
     Indication: Product used for unknown indication
     Dosage: UNK
     Route: 065

REACTIONS (8)
  - Respiration abnormal [Recovering/Resolving]
  - Burning sensation [Unknown]
  - Palpitations [Recovering/Resolving]
  - Muscular weakness [Recovering/Resolving]
  - Aphasia [Recovering/Resolving]
  - Head discomfort [Recovering/Resolving]
  - Loss of consciousness [Recovering/Resolving]
  - Visual impairment [Recovering/Resolving]
